FAERS Safety Report 9939488 (Version 1)
Quarter: 2014Q1

REPORT INFORMATION
  Report Type: Report from Study
  Country: US (occurrence: US)
  Receive Date: 20140303
  Receipt Date: 20140303
  Transmission Date: 20141002
  Serious: No
  Sender: FDA-Public Use
  Company Number: US-ABBVIE-13P-163-1035639-00

PATIENT
  Sex: Male
  Weight: 84.9 kg

DRUGS (5)
  1. HUMIRA PEN [Suspect]
     Indication: PSORIASIS
     Route: 058
     Dates: start: 2007, end: 201210
  2. HUMIRA PEN [Suspect]
     Dates: start: 20121220
  3. HUMIRA [Suspect]
     Indication: PSORIASIS
  4. TACLONEX [Concomitant]
     Indication: PSORIASIS
  5. OINTMENT [Concomitant]
     Indication: PSORIASIS

REACTIONS (4)
  - Injection site bruising [Not Recovered/Not Resolved]
  - Arthralgia [Not Recovered/Not Resolved]
  - Arthralgia [Not Recovered/Not Resolved]
  - Pain in extremity [Not Recovered/Not Resolved]
